FAERS Safety Report 10379925 (Version 3)
Quarter: 2015Q3

REPORT INFORMATION
  Report Type: Spontaneous
  Country: US (occurrence: US)
  Receive Date: 20140813
  Receipt Date: 20150817
  Transmission Date: 20151125
  Serious: Yes (Hospitalization)
  Sender: FDA-Public Use
  Company Number: US-GILEAD-2014-0111662

PATIENT
  Age: 48 Year
  Sex: Female

DRUGS (17)
  1. ISOSORBIDE. [Concomitant]
     Active Substance: ISOSORBIDE
  2. VALIUM [Concomitant]
     Active Substance: DIAZEPAM
  3. NEURONTIN [Concomitant]
     Active Substance: GABAPENTIN
  4. LETAIRIS [Suspect]
     Active Substance: AMBRISENTAN
     Indication: PULMONARY ARTERIAL HYPERTENSION
     Dosage: 5 MG, QD
     Route: 065
     Dates: start: 20140717
  5. LACTOSE [Concomitant]
     Active Substance: LACTOSE
  6. SYNTHROID [Concomitant]
     Active Substance: LEVOTHYROXINE SODIUM
  7. HYDROCODONE [Concomitant]
     Active Substance: HYDROCODONE
  8. NOVOLOG [Concomitant]
     Active Substance: INSULIN ASPART
  9. LANTUS [Concomitant]
     Active Substance: INSULIN GLARGINE
  10. FUROSEMIDE. [Concomitant]
     Active Substance: FUROSEMIDE
  11. DEMADEX [Concomitant]
     Active Substance: TORSEMIDE
  12. ALDACTONE [Concomitant]
     Active Substance: SPIRONOLACTONE
  13. COREG [Concomitant]
     Active Substance: CARVEDILOL
  14. PROTONIX [Concomitant]
     Active Substance: PANTOPRAZOLE SODIUM
  15. LETAIRIS [Suspect]
     Active Substance: AMBRISENTAN
     Indication: PORTOPULMONARY HYPERTENSION
  16. PLAVIX [Concomitant]
     Active Substance: CLOPIDOGREL BISULFATE
  17. ONDANSETRON [Concomitant]
     Active Substance: ONDANSETRON

REACTIONS (1)
  - Fluid overload [Recovered/Resolved]

NARRATIVE: CASE EVENT DATE: 20140724
